FAERS Safety Report 17956478 (Version 1)
Quarter: 2020Q2

REPORT INFORMATION
  Report Type: Spontaneous
  Country: US (occurrence: US)
  Receive Date: 20200627
  Receipt Date: 20200627
  Transmission Date: 20200714
  Serious: Yes (Other)
  Sender: FDA-Public Use
  Company Number: None

PATIENT
  Age: 76 Year
  Sex: Female
  Weight: 76.5 kg

DRUGS (2)
  1. XELJANZ [Suspect]
     Active Substance: TOFACITINIB CITRATE
     Indication: DRUG DELIVERY SYSTEM MALFUNCTION
  2. ONE A DAY MULTI [Concomitant]

REACTIONS (5)
  - Acne [None]
  - Burning sensation [None]
  - Pruritus [None]
  - Erythema [None]
  - Pustule [None]

NARRATIVE: CASE EVENT DATE: 20200310
